FAERS Safety Report 8348563-8 (Version None)
Quarter: 2012Q2

REPORT INFORMATION
  Report Type: 
  Country: None (occurrence: None)
  Receive Date: 20120509
  Receipt Date: 20120430
  Transmission Date: 20120825
  Serious: Yes (Life-Threatening, Hospitalization, Other)
  Sender: FDA-Public Use
  Company Number: FR-BRISTOL-MYERS SQUIBB COMPANY-16418162

PATIENT
  Age: 53 Year
  Sex: Male

DRUGS (1)
  1. METFORMIN HCL [Suspect]
     Indication: TYPE 2 DIABETES MELLITUS

REACTIONS (6)
  - TOXICITY TO VARIOUS AGENTS [None]
  - DEHYDRATION [None]
  - VOMITING [None]
  - RENAL FAILURE ACUTE [None]
  - LACTIC ACIDOSIS [None]
  - PANCREATITIS ACUTE [None]
